FAERS Safety Report 9411913 (Version 1)
Quarter: 2013Q3

REPORT INFORMATION
  Report Type: Report from Study
  Country: US (occurrence: US)
  Receive Date: 20130722
  Receipt Date: 20130722
  Transmission Date: 20140515
  Serious: Yes (Death)
  Sender: FDA-Public Use
  Company Number: PHEH2013US015345

PATIENT
  Age: 73 Year
  Sex: Female

DRUGS (9)
  1. GLEEVEC [Suspect]
     Indication: SOFT TISSUE CANCER
     Dosage: 400 MG, DAILY
     Route: 048
     Dates: start: 20130418
  2. FISH OIL [Concomitant]
  3. VITAMIN E [Concomitant]
  4. VITAMIN C [Concomitant]
  5. CITALOPRAM [Concomitant]
  6. VITAMIN B COMPLEX [Concomitant]
  7. MVI [Concomitant]
  8. LISINOPRIL [Concomitant]
  9. HYDROCHLOROTHIAZIDE [Concomitant]

REACTIONS (1)
  - Cardiac disorder [Fatal]
